FAERS Safety Report 4570230-7 (Version None)
Quarter: 2005Q1

REPORT INFORMATION
  Report Type: 
  Country: None (occurrence: None)
  Receive Date: 20050126
  Receipt Date: 20050126
  Transmission Date: 20050727
  Serious: No
  Sender: FDA-Public Use
  Company Number: None

PATIENT
  Age: 79 Year
  Sex: Male
  Weight: 74 kg

DRUGS (1)
  1. MORPHINE [Suspect]
     Indication: PAIN
     Dosage: 4 MG IV  Q 3H PRN
     Route: 042
     Dates: start: 20041101, end: 20041112

REACTIONS (1)
  - COMA [None]
